FAERS Safety Report 4687339-X (Version None)
Quarter: 2005Q2

REPORT INFORMATION
  Report Type: 
  Country: None (occurrence: None)
  Receive Date: 20050608
  Receipt Date: 20050606
  Transmission Date: 20051028
  Serious: Yes (Other)
  Sender: FDA-Public Use
  Company Number: 004938

PATIENT
  Age: 58 Year
  Sex: Female

DRUGS (6)
  1. MEDROXYPROGESTERONE ACETATE [Suspect]
     Dosage: ORAL
     Route: 048
     Dates: start: 19960101, end: 20020101
  2. PROVERA [Suspect]
     Dosage: ORAL
     Route: 048
     Dates: start: 19960101, end: 20020101
  3. PREMARIN [Suspect]
     Dosage: ORAL
     Route: 048
     Dates: start: 19960101, end: 20020101
  4. MEDROXYPROGESTERONE ACETATE [Suspect]
     Dosage: ORAL
     Route: 048
     Dates: start: 19960101, end: 20020101
  5. ESTRATAB [Suspect]
     Dosage: ORAL
     Route: 048
  6. CYCRIN [Suspect]
     Dosage: ORAL
     Route: 048
     Dates: start: 19960101, end: 20020101

REACTIONS (3)
  - BREAST CANCER [None]
  - OESTROGEN RECEPTOR ASSAY POSITIVE [None]
  - PROGESTERONE RECEPTOR ASSAY POSITIVE [None]
